FAERS Safety Report 18767592 (Version 1)
Quarter: 2021Q1

REPORT INFORMATION
  Report Type: Spontaneous
  Country: US (occurrence: US)
  Receive Date: 20210121
  Receipt Date: 20210121
  Transmission Date: 20210419
  Serious: Yes (Disabling)
  Sender: FDA-Public Use
  Company Number: None

PATIENT
  Age: 68 Year
  Sex: Female
  Weight: 47.7 kg

DRUGS (9)
  1. LORAZEPAM. [Concomitant]
     Active Substance: LORAZEPAM
  2. VITAMIN C [Concomitant]
     Active Substance: ASCORBIC ACID
  3. CUMIN. [Concomitant]
     Active Substance: CUMIN
  4. ADVIL [Concomitant]
     Active Substance: IBUPROFEN
  5. DIAZEPAM. [Concomitant]
     Active Substance: DIAZEPAM
  6. EVENITY [Suspect]
     Active Substance: ROMOSOZUMAB-AQQG
     Indication: OSTEOPOROSIS
     Dosage: ?          QUANTITY:2 INJECTION(S);OTHER FREQUENCY:MONTHLY;?
     Route: 030
     Dates: start: 20200401, end: 20201101
  7. TYLENOL [Concomitant]
     Active Substance: ACETAMINOPHEN
  8. TUMERIC [Concomitant]
     Active Substance: HERBALS\TURMERIC
  9. ALPHA LIPOIC ACID [Concomitant]
     Active Substance: .ALPHA.-LIPOIC ACID

REACTIONS (4)
  - Pain [None]
  - Injection site pain [None]
  - Arthralgia [None]
  - Pain in extremity [None]

NARRATIVE: CASE EVENT DATE: 20200401
